FAERS Safety Report 16222942 (Version 1)
Quarter: 2019Q2

REPORT INFORMATION
  Report Type: Spontaneous
  Country: US (occurrence: US)
  Receive Date: 20190316
  Receipt Date: 20190316
  Transmission Date: 20190711
  Serious: Yes (Hospitalization)
  Sender: FDA-Public Use
  Company Number: None

PATIENT
  Age: 70 Year
  Sex: Male

DRUGS (1)
  1. SULFAMETHOXAZOLE/TRIMETHOPRIM [Suspect]
     Active Substance: SULFAMETHOXAZOLE\TRIMETHOPRIM
     Indication: URINARY TRACT INFECTION
     Route: 048
     Dates: start: 20181124, end: 20181201

REACTIONS (7)
  - Rash [None]
  - Eye pruritus [None]
  - Pruritus [None]
  - Chills [None]
  - Malaise [None]
  - Erythema [None]
  - Mouth ulceration [None]

NARRATIVE: CASE EVENT DATE: 20181201
